FAERS Safety Report 4461924-2 (Version None)
Quarter: 2004Q3

REPORT INFORMATION
  Report Type: 
  Country: None (occurrence: None)
  Receive Date: 20040929
  Receipt Date: 20031119
  Transmission Date: 20050211
  Serious: No
  Sender: FDA-Public Use
  Company Number: US-GLAXOSMITHKLINE-A0440354A

PATIENT
  Age: 80 Year
  Sex: Male

DRUGS (5)
  1. SEREVENT [Suspect]
     Indication: ASTHMA
     Dosage: 50MCG TWICE PER DAY
     Route: 055
  2. FLOVENT [Concomitant]
     Dosage: 2PUFF TWICE PER DAY
  3. PREDNISONE [Concomitant]
     Dosage: 5MG PER DAY
  4. MAXZIDE [Concomitant]
  5. WATER PILL [Concomitant]

REACTIONS (3)
  - FEELING COLD [None]
  - INCREASED UPPER AIRWAY SECRETION [None]
  - PALPITATIONS [None]
